FAERS Safety Report 20936824 (Version 1)
Quarter: 2022Q2

REPORT INFORMATION
  Report Type: Spontaneous
  Country: US (occurrence: None)
  Receive Date: 20220609
  Receipt Date: 20220609
  Transmission Date: 20220720
  Serious: No
  Sender: FDA-Public Use
  Company Number: US-ROCHE-2925744

PATIENT
  Sex: Female

DRUGS (4)
  1. ACTEMRA [Suspect]
     Active Substance: TOCILIZUMAB
     Indication: Rheumatoid arthritis
     Dosage: SWITCHED FROM ONCE EVERY WEEK ;ONGOING: YES
     Route: 058
     Dates: start: 20210722
  2. ACTEMRA [Suspect]
     Active Substance: TOCILIZUMAB
  3. COVID-19 VACCINE [Concomitant]
     Dosage: BOOSTER
     Dates: start: 20210927
  4. TYLENOL [Concomitant]
     Active Substance: ACETAMINOPHEN
     Dates: start: 20210928

REACTIONS (2)
  - Neutrophil count decreased [Recovered/Resolved]
  - Body temperature increased [Recovered/Resolved]

NARRATIVE: CASE EVENT DATE: 20210805
